FAERS Safety Report 7049194-2 (Version None)
Quarter: 2010Q4

REPORT INFORMATION
  Report Type: 
  Country: None (occurrence: None)
  Receive Date: 20101018
  Receipt Date: 20101008
  Transmission Date: 20110411
  Serious: Yes (Other)
  Sender: FDA-Public Use
  Company Number: US-JNJFOC-20101002928

PATIENT
  Age: 60 Year
  Sex: Female

DRUGS (2)
  1. RETIN-A [Suspect]
     Indication: CYST
     Dosage: USED PEARL SIZE OR A BIT MORE ONCE AT NIGHT
     Route: 061
  2. RETIN-A [Suspect]
     Indication: SEBORRHOEA
     Dosage: USED PEARL SIZE OR A BIT MORE ONCE AT NIGHT
     Route: 061

REACTIONS (3)
  - CYST [None]
  - EXPIRED DRUG ADMINISTERED [None]
  - OFF LABEL USE [None]
